FAERS Safety Report 5898721-7 (Version None)
Quarter: 2008Q3

REPORT INFORMATION
  Report Type: 
  Country: None (occurrence: None)
  Receive Date: 20080925
  Receipt Date: 20080502
  Transmission Date: 20090109
  Serious: No
  Sender: FDA-Public Use
  Company Number: A0726100A

PATIENT
  Age: 72 Year
  Sex: Female

DRUGS (7)
  1. WELLBUTRIN XL [Suspect]
     Indication: DEPRESSION
     Dosage: 150MG PER DAY
     Route: 048
     Dates: start: 20080428
  2. SELDANE [Concomitant]
  3. COUMADIN [Concomitant]
  4. PREVACID [Concomitant]
  5. HYDROCODONE BITARTRATE [Concomitant]
  6. PROMETHAZINE [Concomitant]
  7. PROVIGIL [Concomitant]

REACTIONS (2)
  - ANXIETY [None]
  - INSOMNIA [None]
